FAERS Safety Report 16749091 (Version 3)
Quarter: 2019Q3

REPORT INFORMATION
  Report Type: Spontaneous
  Country: CA (occurrence: CA)
  Receive Date: 20190828
  Receipt Date: 20190916
  Transmission Date: 20191005
  Serious: Yes (Hospitalization, Other)
  Sender: FDA-Public Use
  Company Number: CA-CELLTRION INC.-2018CA024931

PATIENT

DRUGS (28)
  1. INFLECTRA [Suspect]
     Active Substance: INFLIXIMAB-DYYB
     Indication: CROHN^S DISEASE
     Dosage: 400 MG, EVERY 0.2.6 WEEKS THEN EVERY 8 WEEKS
     Route: 042
     Dates: start: 20181029
  2. PANTOPRAZOLE [Concomitant]
     Active Substance: PANTOPRAZOLE
     Dosage: 40 MG, 2X/DAY
     Route: 048
  3. AIROMIR [SALBUTAMOL SULFATE] [Concomitant]
     Active Substance: ALBUTEROL SULFATE
     Dosage: 100 MCG AS NEEDED UP TO 4X DAILY
     Route: 055
  4. ZOPICLONE [Concomitant]
     Active Substance: ZOPICLONE
     Dosage: 7.5 MG, 1X/DAY
     Route: 048
  5. SYMBICORT [Concomitant]
     Active Substance: BUDESONIDE\FORMOTEROL FUMARATE DIHYDRATE
     Dosage: 200 MG, 1X/DAY
     Route: 055
  6. DULOXETINE. [Concomitant]
     Active Substance: DULOXETINE
     Dosage: 600 MG, 1X/DAY
     Route: 048
  7. LORAZEPAM. [Concomitant]
     Active Substance: LORAZEPAM
     Dosage: 0.75 MG, AS NEEDED
     Route: 048
  8. PREGABALIN. [Concomitant]
     Active Substance: PREGABALIN
     Dosage: 150 MG, 2X/DAY EVERY 2 WEEKS
     Route: 065
  9. PRAZOLE [OMEPRAZOLE] [Concomitant]
     Dosage: 2.5 MG, 1X/DAY
     Route: 048
  10. INFLECTRA [Suspect]
     Active Substance: INFLIXIMAB-DYYB
     Dosage: 400 MG, EVERY 0.2.6 WEEKS THEN EVERY 8 WEEKS
     Route: 042
     Dates: start: 20181114
  11. INFLECTRA [Suspect]
     Active Substance: INFLIXIMAB-DYYB
     Dosage: 400 MG, EVERY 0.2.6 WEEKS THEN EVERY 8 WEEKS
     Route: 042
     Dates: start: 20190613, end: 20190613
  12. INFLECTRA [Suspect]
     Active Substance: INFLIXIMAB-DYYB
     Dosage: 400 MG, EVERY 0.2.6 WEEKS THEN EVERY 8 WEEKS
     Route: 042
     Dates: start: 20190906
  13. TRAMADOL. [Concomitant]
     Active Substance: TRAMADOL
     Dosage: 325MG/37.75MF (MG) 2XDAY AS NEEDED
     Route: 048
  14. SYNTHROID [Concomitant]
     Active Substance: LEVOTHYROXINE SODIUM
     Dosage: 0.175 MG, 1X/DAY
     Route: 065
  15. SUMATRIPTAN. [Concomitant]
     Active Substance: SUMATRIPTAN
     Dosage: 6MG/ 0.5ML EVERY 24 HOURS
  16. CAMBIA [Concomitant]
     Active Substance: DICLOFENAC POTASSIUM
     Dosage: 500 MG, 2X/DAY AS NEEDED
     Route: 065
  17. INFLECTRA [Suspect]
     Active Substance: INFLIXIMAB-DYYB
     Dosage: 400 MG, EVERY 0.2.6 WEEKS THEN EVERY 8 WEEKS
     Route: 042
     Dates: start: 20181129
  18. INFLECTRA [Suspect]
     Active Substance: INFLIXIMAB-DYYB
     Dosage: 400 MG, EVERY 0.2.6 WEEKS THEN EVERY 8 WEEKS
     Route: 042
     Dates: start: 20181210
  19. CYTOMEL [Concomitant]
     Active Substance: LIOTHYRONINE SODIUM
     Dosage: 25 MCG, 1/2 TAB, ALTERNATE DAY
     Route: 065
  20. TESTOSTERONE CIPIONATE [Concomitant]
     Active Substance: TESTOSTERONE
     Dosage: 100 MG, EVERY 3 WEEKS
  21. INFLECTRA [Suspect]
     Active Substance: INFLIXIMAB-DYYB
     Dosage: 400 MG, EVERY 0.2.6 WEEKS THEN EVERY 8 WEEKS
     Route: 042
     Dates: start: 20190205
  22. ASACOL [Concomitant]
     Active Substance: MESALAMINE
     Dosage: 800 MG, 3X/DAY
     Route: 065
  23. METFORMIN [Concomitant]
     Active Substance: METFORMIN HYDROCHLORIDE
     Dosage: 500 MG, 2X/DAY
     Route: 048
  24. JARDIANCE [Concomitant]
     Active Substance: EMPAGLIFLOZIN
     Dosage: 25 MG, 1X/DAY
     Route: 048
  25. JANUVIA [Concomitant]
     Active Substance: SITAGLIPTIN PHOSPHATE
     Dosage: 100 MG, 1X/DAY
     Route: 048
  26. METHOTREXATE. [Concomitant]
     Active Substance: METHOTREXATE
     Dosage: UNK
     Dates: start: 201908
  27. INFLECTRA [Suspect]
     Active Substance: INFLIXIMAB-DYYB
     Dosage: 400 MG, EVERY 0.2.6 WEEKS THEN EVERY 8 WEEKS
     Route: 042
     Dates: start: 20190402
  28. AMITRIPTYLINE [Concomitant]
     Active Substance: AMITRIPTYLINE
     Dosage: 200 MG, 1X/DAY
     Route: 048

REACTIONS (9)
  - Diabetes mellitus [Unknown]
  - Productive cough [Unknown]
  - Sepsis [Recovering/Resolving]
  - Sputum discoloured [Unknown]
  - Inappropriate schedule of product administration [Unknown]
  - Condition aggravated [Not Recovered/Not Resolved]
  - Immune system disorder [Unknown]
  - Nasopharyngitis [Unknown]
  - Malaise [Recovering/Resolving]

NARRATIVE: CASE EVENT DATE: 20181210
